FAERS Safety Report 16626176 (Version 1)
Quarter: 2019Q3

REPORT INFORMATION
  Report Type: Spontaneous
  Country: US (occurrence: US)
  Receive Date: 20190724
  Receipt Date: 20190724
  Transmission Date: 20191004
  Serious: No
  Sender: FDA-Public Use
  Company Number: US-TEVA-2019-US-1081784

PATIENT
  Sex: Male

DRUGS (1)
  1. LORAZEPAM. [Suspect]
     Active Substance: LORAZEPAM
     Indication: ANXIETY
     Route: 065
     Dates: start: 2015

REACTIONS (11)
  - Speech disorder [Unknown]
  - Dyspnoea [Unknown]
  - Infection [Unknown]
  - Amnesia [Unknown]
  - Vertigo [Unknown]
  - Memory impairment [Unknown]
  - Contraceptive diaphragm [Unknown]
  - Panic reaction [Unknown]
  - Confusional state [Unknown]
  - Thinking abnormal [Unknown]
  - Balance disorder [Unknown]
